FAERS Safety Report 4382232-4 (Version None)
Quarter: 2004Q2

REPORT INFORMATION
  Report Type: 
  Country: None (occurrence: None)
  Receive Date: 20040616
  Receipt Date: 20040603
  Transmission Date: 20050107
  Serious: Yes (Death)
  Sender: FDA-Public Use
  Company Number: 2004-UK-00523UK

PATIENT
  Age: 96 Year
  Sex: Female

DRUGS (4)
  1. MOBIC [Suspect]
     Indication: RHEUMATOID ARTHRITIS
     Dosage: 15 MG PO
     Route: 048
     Dates: end: 20040526
  2. DIGOXIN [Concomitant]
  3. FUROSEMIDE [Concomitant]
  4. BISOPROLOL FUMARATE [Concomitant]

REACTIONS (1)
  - DUODENAL ULCER PERFORATION [None]
